FAERS Safety Report 9685377 (Version 1)
Quarter: 2013Q4

REPORT INFORMATION
  Report Type: Spontaneous
  Country: US (occurrence: US)
  Receive Date: 20131113
  Receipt Date: 20131113
  Transmission Date: 20140711
  Serious: Yes (Other)
  Sender: FDA-Public Use
  Company Number: US-ASTRAZENECA-2013SE81941

PATIENT
  Age: 56 Year
  Sex: Male

DRUGS (1)
  1. BRILINTA [Suspect]
     Indication: STENT PLACEMENT
     Route: 048

REACTIONS (1)
  - Ischaemic stroke [Unknown]
